FAERS Safety Report 26032509 (Version 1)
Quarter: 2025Q4

REPORT INFORMATION
  Report Type: Report from Study
  Country: JP (occurrence: JP)
  Receive Date: 20251112
  Receipt Date: 20251112
  Transmission Date: 20260117
  Serious: Yes (Death)
  Sender: ROCHE
  Company Number: JP-CHUGAI-2025035697

PATIENT
  Sex: Male

DRUGS (1)
  1. EVRYSDI [Suspect]
     Active Substance: RISDIPLAM
     Indication: Spinal muscular atrophy
     Dosage: UNK
     Route: 048

REACTIONS (1)
  - Pneumonia [Fatal]
